FAERS Safety Report 8966171 (Version 1)
Quarter: 2012Q4

REPORT INFORMATION
  Report Type: Spontaneous
  Country: US (occurrence: None)
  Receive Date: 20121204
  Receipt Date: 20121204
  Transmission Date: 20130627
  Serious: Yes (Hospitalization)
  Sender: FDA-Public Use
  Company Number: 137504

PATIENT
  Age: 62 Year
  Sex: Male

DRUGS (2)
  1. CYTARABINE [Suspect]
     Indication: ACUTE MYELOID LEUKEMIA
     Dosage: 200mg  1 day
     Dates: start: 20120622, end: 20120626
  2. DAUNORUBICIN [Suspect]
     Indication: ACUTE MYELOID LEUKEMIA
     Dosage: 120mg  1 Day  IV
     Route: 042
     Dates: start: 20120417, end: 20120419

REACTIONS (6)
  - Hepatic lesion [None]
  - Pneumonia [None]
  - Fungal infection [None]
  - Bone marrow failure [None]
  - Hepatic infection fungal [None]
  - Respiratory tract infection fungal [None]
